FAERS Safety Report 12894438 (Version 3)
Quarter: 2017Q2

REPORT INFORMATION
  Report Type: Report from Study
  Country: MX (occurrence: MX)
  Receive Date: 20161028
  Receipt Date: 20170629
  Transmission Date: 20170830
  Serious: Yes (Other)
  Sender: FDA-Public Use
  Company Number: MX-BAYER-2016-203593

PATIENT
  Age: 49 Year
  Sex: Female
  Weight: 58 kg

DRUGS (10)
  1. ACETAMINOPHEN. [Concomitant]
     Active Substance: ACETAMINOPHEN
     Dosage: 1 DF, BID
  2. INTERFERON BETA-1B [Suspect]
     Active Substance: INTERFERON BETA-1B
     Dosage: UNK
  3. OMEPRAZOLE. [Concomitant]
     Active Substance: OMEPRAZOLE
     Dosage: 1 DF, QD
  4. BETAFERON [Suspect]
     Active Substance: INTERFERON BETA-1B
     Indication: MULTIPLE SCLEROSIS
     Dosage: 1 DF, QOD
     Dates: start: 2006
  5. IMURAN [Concomitant]
     Active Substance: AZATHIOPRINE
     Dosage: UNK
  6. GABAPENTIN. [Concomitant]
     Active Substance: GABAPENTIN
     Dosage: 1 DF, QD
  7. PAROXETINE. [Concomitant]
     Active Substance: PAROXETINE
     Dosage: 1 DF, QD
  8. CALCORT [Concomitant]
     Active Substance: DEFLAZACORT
     Dosage: UNK
  9. EXTAVIA [Suspect]
     Active Substance: INTERFERON BETA-1B
     Indication: MULTIPLE SCLEROSIS
     Dosage: UNK
  10. INDERAL [Concomitant]
     Active Substance: PROPRANOLOL HYDROCHLORIDE

REACTIONS (17)
  - Trismus [Not Recovered/Not Resolved]
  - Fatigue [Not Recovered/Not Resolved]
  - Oesophagitis [Recovering/Resolving]
  - Dysphonia [None]
  - Pain in extremity [Not Recovered/Not Resolved]
  - Mobility decreased [Not Recovered/Not Resolved]
  - Gait disturbance [Not Recovered/Not Resolved]
  - Dysphemia [Not Recovered/Not Resolved]
  - Dyspepsia [Recovering/Resolving]
  - Arrhythmia [Unknown]
  - Mouth injury [Not Recovered/Not Resolved]
  - Tremor [Not Recovered/Not Resolved]
  - Musculoskeletal disorder [Not Recovered/Not Resolved]
  - Arthralgia [Not Recovered/Not Resolved]
  - Abdominal pain upper [Recovering/Resolving]
  - Back pain [Not Recovered/Not Resolved]
  - Multiple sclerosis relapse [Not Recovered/Not Resolved]

NARRATIVE: CASE EVENT DATE: 20161102
